FAERS Safety Report 16074046 (Version 2)
Quarter: 2019Q2

REPORT INFORMATION
  Report Type: Report from Study
  Country: GB (occurrence: GB)
  Receive Date: 20190314
  Receipt Date: 20190403
  Transmission Date: 20190711
  Serious: Yes (Other)
  Sender: FDA-Public Use
  Company Number: PHHY2019GB055008

PATIENT
  Sex: Female

DRUGS (1)
  1. HYRIMOZ [Suspect]
     Active Substance: ADALIMUMAB-ADAZ
     Indication: CROHN^S DISEASE
     Dosage: 160 MG, UNK (LOADING DOSE)
     Route: 058
     Dates: start: 20190220

REACTIONS (3)
  - Arthritis [Unknown]
  - Arthralgia [Not Recovered/Not Resolved]
  - Inflammatory bowel disease [Unknown]
